FAERS Safety Report 15882301 (Version 2)
Quarter: 2019Q1

REPORT INFORMATION
  Report Type: Spontaneous
  Country: US (occurrence: US)
  Receive Date: 20190128
  Receipt Date: 20190131
  Transmission Date: 20190417
  Serious: Yes (Other)
  Sender: FDA-Public Use
  Company Number: US-BRISTOL-MYERS SQUIBB COMPANY-BMS-2019-006044

PATIENT
  Age: 86 Year
  Sex: Female
  Weight: 130 kg

DRUGS (1)
  1. ELIQUIS [Suspect]
     Active Substance: APIXABAN
     Indication: CEREBROVASCULAR ACCIDENT PROPHYLAXIS
     Dosage: UNK
     Route: 065
     Dates: start: 20181217

REACTIONS (8)
  - Blood pressure measurement [Unknown]
  - Dementia Alzheimer^s type [Unknown]
  - Peripheral swelling [Unknown]
  - Diarrhoea [Unknown]
  - Epistaxis [Unknown]
  - Anxiety [Unknown]
  - Oedema peripheral [Unknown]
  - Tremor [Unknown]

NARRATIVE: CASE EVENT DATE: 20190125
